FAERS Safety Report 14988378 (Version 3)
Quarter: 2019Q1

REPORT INFORMATION
  Report Type: Spontaneous
  Country: FR (occurrence: FR)
  Receive Date: 20180608
  Receipt Date: 20190221
  Transmission Date: 20190417
  Serious: Yes (Hospitalization, Other)
  Sender: FDA-Public Use
  Company Number: FR-ACCORD-068389

PATIENT
  Age: 64 Year
  Sex: Male

DRUGS (3)
  1. QUETIAPINE. [Suspect]
     Active Substance: QUETIAPINE
     Dosage: REGIMEN 1
     Route: 048
  2. DIAZEPAM. [Suspect]
     Active Substance: DIAZEPAM
     Dosage: REGIMEN 1
  3. ZOPICLONE [Suspect]
     Active Substance: ZOPICLONE
     Dosage: REGIMEN 1

REACTIONS (2)
  - Toxicity to various agents [Unknown]
  - Encephalopathy [Unknown]
